FAERS Safety Report 18712073 (Version 6)
Quarter: 2022Q1

REPORT INFORMATION
  Report Type: Spontaneous
  Country: US (occurrence: US)
  Receive Date: 20210107
  Receipt Date: 20220303
  Transmission Date: 20220424
  Serious: No
  Sender: FDA-Public Use
  Company Number: US-PFIZER INC-2019256768

PATIENT
  Age: 70 Year
  Sex: Female
  Weight: 86.18 kg

DRUGS (3)
  1. SKELAXIN [Suspect]
     Active Substance: METAXALONE
     Indication: Pain
     Dosage: 800 MG, 2X/DAY (TWICE A DAY AS NEEDED)
     Route: 048
  2. SKELAXIN [Suspect]
     Active Substance: METAXALONE
     Dosage: 800 MG, AS NEEDED (TWICE A DAY AS NEEDED)
     Route: 048
  3. SKELAXIN [Suspect]
     Active Substance: METAXALONE
     Dosage: 800 MG (QUANTITY FOR 90 DAYS: 180)

REACTIONS (3)
  - Nervousness [Unknown]
  - Memory impairment [Unknown]
  - Intentional product use issue [Unknown]
